FAERS Safety Report 5078612-4 (Version None)
Quarter: 2006Q3

REPORT INFORMATION
  Report Type: 
  Country: None (occurrence: None)
  Receive Date: 20060810
  Receipt Date: 20060810
  Transmission Date: 20061208
  Serious: Yes (Hospitalization)
  Sender: FDA-Public Use
  Company Number: None

PATIENT
  Age: 24 Year
  Sex: Female
  Weight: 68.0396 kg

DRUGS (4)
  1. NASONEX [Suspect]
     Indication: MULTIPLE ALLERGIES
     Dosage: 50 MCG 2X A DAY NASAL
     Route: 045
     Dates: start: 20050401, end: 20060709
  2. SINGULAIR [Concomitant]
  3. ASTHMANEX [Concomitant]
  4. ADVIR [Concomitant]

REACTIONS (4)
  - ARTERIAL RUPTURE [None]
  - COAGULOPATHY [None]
  - EPISTAXIS [None]
  - LOSS OF CONSCIOUSNESS [None]
